FAERS Safety Report 23726175 (Version 1)
Quarter: 2024Q2

REPORT INFORMATION
  Report Type: Spontaneous
  Country: IT (occurrence: IT)
  Receive Date: 20240410
  Receipt Date: 20240410
  Transmission Date: 20240715
  Serious: Yes (Other)
  Sender: FDA-Public Use
  Company Number: IT-ASTELLAS-2024US005342

PATIENT
  Age: 84 Year
  Sex: Female

DRUGS (16)
  1. RAMIPRIL [Suspect]
     Active Substance: RAMIPRIL
     Indication: Product used for unknown indication
     Dosage: 2 DF, ONCE DAILY (1 TABLET AT 8 AM AND 1 TABLET AT 8 PM)
     Route: 065
  2. ALDACTONE [Suspect]
     Active Substance: SPIRONOLACTONE
     Indication: Product used for unknown indication
     Dosage: 1 DF, EVERY OTHER DAY (AT 4 PM EVERY OTHER DAY)
     Route: 065
  3. ROXADUSTAT [Suspect]
     Active Substance: ROXADUSTAT
     Indication: Chronic kidney disease
     Dosage: 70 MG, THRICE WEEKLY (56 HOURS)
     Route: 065
     Dates: start: 20231215, end: 20240215
  4. ROXADUSTAT [Suspect]
     Active Substance: ROXADUSTAT
     Dosage: 40 MG, THRICE WEEKLY (56 HOURS)
     Route: 065
     Dates: start: 20240312
  5. ALENDRONATE [Concomitant]
     Active Substance: ALENDRONATE SODIUM
     Dosage: 1 DOSAGE FORM, QW
     Route: 065
  6. LANSOPRAZOLE [Concomitant]
     Active Substance: LANSOPRAZOLE
     Indication: Product used for unknown indication
     Dosage: 1 DF, EVERY OTHER DAY (AT 8 AM)
     Route: 065
  7. ZOLPIDEM TARTRATE [Concomitant]
     Active Substance: ZOLPIDEM TARTRATE
     Indication: Product used for unknown indication
     Dosage: 0.5 DF, ONCE DAILY (IN THE EVENING)
     Route: 065
  8. Rosuvastatina e ezetimibe doc [Concomitant]
     Indication: Product used for unknown indication
     Dosage: 1 DF, ONCE DAILY (20/10 MG 1 TABLET AT 20 PM)
     Route: 065
  9. SODIUM BICARBONATE [Concomitant]
     Active Substance: SODIUM BICARBONATE
     Indication: Product used for unknown indication
     Dosage: 1 DF, TWICE DAILY ( TABLET/BID AWAY FROM MEALS, DISSOLVED IN A LITTLE WATER)
     Route: 065
  10. ACETAMINOPHEN\CODEINE PHOSPHATE [Concomitant]
     Active Substance: ACETAMINOPHEN\CODEINE PHOSPHATE
     Indication: Product used for unknown indication
     Dosage: 1 DF, ONCE DAILY (IN THE EVENING)
     Route: 065
  11. RANOLAZINE [Concomitant]
     Active Substance: RANOLAZINE
     Indication: Product used for unknown indication
     Dosage: 2 DF, ONCE DAILY (1 TABLET AT 8 AM AND 1 TABLET AT 8 PM)
     Route: 065
  12. FUROSEMIDE [Concomitant]
     Active Substance: FUROSEMIDE
     Indication: Product used for unknown indication
     Dosage: 1 DF, EVERY OTHER DAY (1 TABLET AT 8 AM EVERY OTHER DAY)
     Route: 065
  13. CALCIFEDIOL [Concomitant]
     Active Substance: CALCIFEDIOL
     Indication: Product used for unknown indication
     Dosage: 1 DF, EVERY 2 WEEKS (0.226 1 TABLET EVERY 2 WEEKS)
     Route: 065
  14. BISOPROLOL [Concomitant]
     Active Substance: BISOPROLOL\BISOPROLOL FUMARATE
     Indication: Product used for unknown indication
     Dosage: 1 DF, ONCE DAILY (AT 8 AM)
     Route: 065
  15. ANASTROZOLE [Concomitant]
     Active Substance: ANASTROZOLE
     Indication: Product used for unknown indication
     Dosage: 1 DF, ONCE DAILY (AT 8 AM) (FOR 5 YEARS)
     Route: 065
  16. ASPIRIN [Concomitant]
     Active Substance: ASPIRIN
     Indication: Product used for unknown indication
     Dosage: 1 DF, ONCE DAILY (AT 12 AM ON A FULL STOMACH)
     Route: 065

REACTIONS (2)
  - Hyperkalaemia [Not Recovered/Not Resolved]
  - Haemoglobin increased [Not Recovered/Not Resolved]

NARRATIVE: CASE EVENT DATE: 20240215
